FAERS Safety Report 8102415-7 (Version None)
Quarter: 2012Q1

REPORT INFORMATION
  Report Type: 
  Country: None (occurrence: None)
  Receive Date: 20120131
  Receipt Date: 20120131
  Transmission Date: 20120608
  Serious: No
  Sender: FDA-Public Use
  Company Number: None

PATIENT
  Sex: Female
  Weight: 14.4 kg

DRUGS (3)
  1. METHOTREXATE [Suspect]
     Dosage: 369.5 MG
  2. VINCRISTINE SULFATE [Suspect]
     Dosage: 3.95 MG
  3. LEUCOVORIN CALCIUM [Suspect]
     Dosage: 10 MG

REACTIONS (5)
  - RESPIRATORY FAILURE [None]
  - SECRETION DISCHARGE [None]
  - PYREXIA [None]
  - NEUTROPENIA [None]
  - SHOCK [None]
